FAERS Safety Report 6735619-6 (Version None)
Quarter: 2010Q2

REPORT INFORMATION
  Report Type: 
  Country: None (occurrence: None)
  Receive Date: 20100521
  Receipt Date: 20100512
  Transmission Date: 20101027
  Serious: Yes (Hospitalization)
  Sender: FDA-Public Use
  Company Number: ES-ABBOTT-10P-144-0642531-00

PATIENT
  Age: 30 Year
  Sex: Male

DRUGS (3)
  1. HUMIRA [Suspect]
     Indication: PSORIASIS
     Route: 058
  2. ZYPREXA [Concomitant]
     Indication: PSYCHOTIC BEHAVIOUR
     Dosage: 2.5-5-2.5
     Dates: start: 20100401
  3. LORMETAZEPAM [Concomitant]
     Indication: PSYCHOTIC BEHAVIOUR
     Dates: start: 20100501

REACTIONS (5)
  - BIPOLAR DISORDER [None]
  - DYSPNOEA [None]
  - MENTAL DISORDER DUE TO A GENERAL MEDICAL CONDITION [None]
  - PSYCHOTIC BEHAVIOUR [None]
  - PYREXIA [None]
